FAERS Safety Report 6760728-5 (Version None)
Quarter: 2010Q2

REPORT INFORMATION
  Report Type: 
  Country: None (occurrence: None)
  Receive Date: 20100608
  Receipt Date: 20100603
  Transmission Date: 20101027
  Serious: Yes (Other)
  Sender: FDA-Public Use
  Company Number: JP-SANOFI-AVENTIS-2010SA031925

PATIENT

DRUGS (2)
  1. PLAVIX [Suspect]
     Indication: STENT PLACEMENT
     Route: 048
  2. ASPIRIN [Concomitant]
     Indication: STENT PLACEMENT

REACTIONS (1)
  - GRANULOCYTOPENIA [None]
